FAERS Safety Report 12073084 (Version 3)
Quarter: 2016Q1

REPORT INFORMATION
  Report Type: Spontaneous
  Country: US (occurrence: US)
  Receive Date: 20160212
  Receipt Date: 20160301
  Transmission Date: 20160526
  Serious: Yes (Other)
  Sender: FDA-Public Use
  Company Number: US-GLAXOSMITHKLINE-US2016017348

PATIENT
  Age: 6 Year
  Sex: Male
  Weight: 24.94 kg

DRUGS (2)
  1. VENTOLIN HFA [Suspect]
     Active Substance: ALBUTEROL SULFATE
     Dosage: 4 PUFF(S), QID
     Route: 055
     Dates: start: 20130930
  2. VENTOLIN HFA [Suspect]
     Active Substance: ALBUTEROL SULFATE
     Indication: LUNG DISORDER
     Dosage: 4 PUFF(S), PRN
     Route: 055

REACTIONS (3)
  - Tracheostomy [Unknown]
  - Prescribed overdose [Unknown]
  - Device use error [Unknown]

NARRATIVE: CASE EVENT DATE: 201309
